FAERS Safety Report 10145009 (Version 3)
Quarter: 2014Q2

REPORT INFORMATION
  Report Type: Report from Study
  Country: NL (occurrence: NL)
  Receive Date: 20140501
  Receipt Date: 20140520
  Transmission Date: 20141212
  Serious: Yes (Hospitalization)
  Sender: FDA-Public Use
  Company Number: NL-ROCHE-1388956

PATIENT
  Age: 72 Year
  Sex: Male
  Weight: 81 kg

DRUGS (5)
  1. BEVACIZUMAB [Suspect]
     Indication: GASTRIC CANCER
     Dosage: DATE OF LAST DOSE PRIOR TO EVENT : 03/MAR/2014, CUMULATIVE DOSE: 600
     Route: 042
     Dates: start: 20140120
  2. CAPECITABINE [Suspect]
     Indication: GASTRIC CANCER
     Dosage: DATE OF LAST DOSE PRIOR TO EVENT : 03/MAR/2014,, CUMULATIVE DOSE: 3600
     Route: 048
     Dates: start: 20140120
  3. TRASTUZUMAB [Suspect]
     Indication: GASTRIC CANCER
     Dosage: DATE OF LAST DOSE PRIOR TO EVENT : 03/MAR/2014, CUMULATIVE DOSE: 645
     Route: 042
     Dates: start: 20140120
  4. DOCETAXEL [Suspect]
     Indication: GASTRIC CANCER
     Dosage: DATE OF LAST DOSE PRIOR TO EVENT : 03/MAR/2014,CUMULATIVE DOSE: 95
     Route: 042
     Dates: start: 20140120
  5. OXALIPLATIN [Suspect]
     Indication: GASTRIC CANCER
     Dosage: DATE OF LAST DOSE PRIOR TO EVENT : 03/MAR/2014, CUMULATIVE DOSE: 195
     Route: 042
     Dates: start: 20140120

REACTIONS (2)
  - Diarrhoea [Recovered/Resolved]
  - Gastric perforation [Recovered/Resolved]
